FAERS Safety Report 4463896-3 (Version None)
Quarter: 2004Q3

REPORT INFORMATION
  Report Type: 
  Country: None (occurrence: None)
  Receive Date: 20040929
  Receipt Date: 20040916
  Transmission Date: 20050211
  Serious: Yes (Life-Threatening)
  Sender: FDA-Public Use
  Company Number: 2004038318

PATIENT
  Age: 42 Year
  Sex: Male

DRUGS (6)
  1. VIAGRA [Suspect]
     Indication: ERECTILE DYSFUNCTION
     Dosage: (100 MG, AS NECESSARY), ORAL
     Route: 048
     Dates: start: 20020901, end: 20021207
  2. FUROSEMIDE [Concomitant]
  3. THIAMINE (THIAMINE) [Concomitant]
  4. FORCEVAL (AMINO ACIDS NOS, ELECTROLYTES NOS, FERROUS FUMARATE, NICOTIN [Concomitant]
  5. LANSAPRAZOLE (LANSOPRAZOLE) [Concomitant]
  6. HALOPERIDOL [Concomitant]

REACTIONS (1)
  - OESOPHAGEAL VARICES HAEMORRHAGE [None]
